FAERS Safety Report 10046825 (Version 1)
Quarter: 2014Q1

REPORT INFORMATION
  Report Type: Report from Study
  Country: US (occurrence: US)
  Receive Date: 20140331
  Receipt Date: 20140331
  Transmission Date: 20141002
  Serious: Yes (Other)
  Sender: FDA-Public Use
  Company Number: PHEH2014US006045

PATIENT
  Sex: Male

DRUGS (3)
  1. EXELON PATCH [Suspect]
     Indication: AMNESIA
     Dosage: 4.6 MG, UNK
     Route: 062
  2. EXELON PATCH [Suspect]
     Dosage: UNK UKN, UNK
     Route: 062
  3. DRUG THERAPY NOS [Suspect]
     Indication: AMNESIA
     Dosage: UNK UKN, UNK

REACTIONS (3)
  - Diabetes mellitus [Unknown]
  - Hypertension [Unknown]
  - Abdominal discomfort [Unknown]
